FAERS Safety Report 13065540 (Version 1)
Quarter: 2016Q4

REPORT INFORMATION
  Report Type: Spontaneous
  Country: CA (occurrence: CA)
  Receive Date: 20161227
  Receipt Date: 20161227
  Transmission Date: 20170207
  Serious: Yes (Other)
  Sender: FDA-Public Use
  Company Number: CA-TEVA-711630ACC

PATIENT
  Sex: Female

DRUGS (2)
  1. FLOVENT [Concomitant]
     Active Substance: FLUTICASONE PROPIONATE
  2. TEVA-SALBUTAMOL [Suspect]
     Active Substance: ALBUTEROL
     Indication: BRONCHITIS
     Dosage: TOOK 1 PUFF 3 TIMES A DAY AND SUNDAY TOOK 2 PUFFS 4 TIMES A DAY
     Route: 055

REACTIONS (2)
  - Dyspnoea [Unknown]
  - Drug hypersensitivity [Unknown]
